FAERS Safety Report 25260728 (Version 2)
Quarter: 2025Q2

REPORT INFORMATION
  Report Type: Spontaneous
  Country: CO (occurrence: CO)
  Receive Date: 20250501
  Receipt Date: 20250510
  Transmission Date: 20250717
  Serious: Yes (Hospitalization, Other)
  Sender: NOVO NORDISK
  Company Number: CO-NOVOPROD-1408091

PATIENT
  Age: 85 Year
  Sex: Male
  Weight: 60 kg

DRUGS (3)
  1. RYBELSUS [Suspect]
     Active Substance: SEMAGLUTIDE
     Indication: Type 2 diabetes mellitus
     Dosage: 3 MG, QD
     Route: 048
     Dates: start: 2022
  2. INSULIN GLARGINE [Concomitant]
     Active Substance: INSULIN GLARGINE
     Indication: Type 2 diabetes mellitus
     Route: 058
  3. EMPAGLIFLOZIN AND METFORMIN HYDROCHLORIDE [Concomitant]
     Active Substance: EMPAGLIFLOZIN\METFORMIN HYDROCHLORIDE
     Indication: Type 2 diabetes mellitus
     Route: 048

REACTIONS (4)
  - Fall [Recovering/Resolving]
  - Urinary incontinence [Recovering/Resolving]
  - Subdural haematoma [Recovering/Resolving]
  - Craniocerebral injury [Recovering/Resolving]

NARRATIVE: CASE EVENT DATE: 20250212
